FAERS Safety Report 7047030-1 (Version None)
Quarter: 2010Q4

REPORT INFORMATION
  Report Type: 
  Country: None (occurrence: None)
  Receive Date: 20101012
  Receipt Date: 20100924
  Transmission Date: 20110411
  Serious: Yes (Hospitalization, Other)
  Sender: FDA-Public Use
  Company Number: 2010-3389

PATIENT
  Age: 76 Year
  Sex: Female
  Weight: 85 kg

DRUGS (9)
  1. APO-GO PEN (APO-GO) (APOMORPHINE HYDROCHLORIDE) (APOMORPHINE HYDROCHLO [Suspect]
     Indication: PARKINSON'S DISEASE
     Dates: start: 20090206
  2. PROCYTHOL (SELEGILINE) [Concomitant]
  3. STALEVO (STALEVO) [Concomitant]
  4. REQUIP [Concomitant]
  5. VASCACE PLUS (DYNORM PLUS) [Concomitant]
  6. LEVOTHYROXINE SODIUM [Concomitant]
  7. CILROTON (DOMPERIDONE) [Concomitant]
  8. ACTONEL [Concomitant]
  9. MIRAPEX [Concomitant]

REACTIONS (12)
  - ABNORMAL DREAMS [None]
  - CRYING [None]
  - DEPRESSED MOOD [None]
  - GASTROENTERITIS [None]
  - HYPERKERATOSIS [None]
  - HYPOKALAEMIA [None]
  - INJECTION SITE ERYTHEMA [None]
  - INJECTION SITE NODULE [None]
  - INJECTION SITE REACTION [None]
  - NO THERAPEUTIC RESPONSE [None]
  - PANNICULITIS [None]
  - PHOBIA [None]
